FAERS Safety Report 7685749-X (Version None)
Quarter: 2011Q3

REPORT INFORMATION
  Report Type: 
  Country: None (occurrence: None)
  Receive Date: 20110815
  Receipt Date: 20110815
  Transmission Date: 20111222
  Serious: Yes (Hospitalization)
  Sender: FDA-Public Use
  Company Number: None

PATIENT
  Age: 52 Year
  Sex: Male
  Weight: 978.85 kg

DRUGS (5)
  1. PHENYTOIN EXTENDED [Concomitant]
     Dates: start: 20110728, end: 20110802
  2. PHENYTOIN [Suspect]
     Indication: EPILEPSY
     Dosage: 460 MG
     Route: 048
     Dates: start: 20110728, end: 20110802
  3. PRAVASTATIN [Concomitant]
  4. CELEXA [Concomitant]
  5. LISINOPRIL [Concomitant]

REACTIONS (3)
  - CONVULSION [None]
  - ANTICONVULSANT DRUG LEVEL BELOW THERAPEUTIC [None]
  - PRODUCT SUBSTITUTION ISSUE [None]
